FAERS Safety Report 6476643-0 (Version None)
Quarter: 2009Q4

REPORT INFORMATION
  Report Type: 
  Country: None (occurrence: None)
  Receive Date: 20091207
  Receipt Date: 20091127
  Transmission Date: 20100525
  Serious: Yes (Other)
  Sender: FDA-Public Use
  Company Number: CA-ABBOTT-09P-028-0607001-00

PATIENT
  Sex: Male
  Weight: 83.536 kg

DRUGS (17)
  1. LUPRON DEPOT [Suspect]
     Indication: PROSTATE CANCER
     Route: 050
     Dates: start: 20090214
  2. GEN-METFORMIN [Concomitant]
     Indication: DRUG USE FOR UNKNOWN INDICATION
     Route: 048
  3. NOVO-HYDRAZIDE [Concomitant]
     Indication: DRUG USE FOR UNKNOWN INDICATION
  4. ASAPHEN [Concomitant]
     Indication: DRUG USE FOR UNKNOWN INDICATION
  5. NORVASC [Concomitant]
     Indication: DRUG USE FOR UNKNOWN INDICATION
  6. LIPITOR [Concomitant]
     Indication: DRUG USE FOR UNKNOWN INDICATION
  7. SANDOZ-BISOPROLOL [Concomitant]
     Indication: DRUG USE FOR UNKNOWN INDICATION
  8. RATIO-AMCINONIDE [Concomitant]
     Indication: DRUG USE FOR UNKNOWN INDICATION
     Route: 061
  9. NITRO-SPRAY [Concomitant]
     Indication: DRUG USE FOR UNKNOWN INDICATION
  10. OXAZEPAM [Concomitant]
     Indication: INSOMNIA
     Dosage: 1 TABLET AT HOUR OF SLEEP IF NEEDED
  11. NOVORAPID [Concomitant]
     Indication: DRUG USE FOR UNKNOWN INDICATION
  12. NOVORAPID [Concomitant]
  13. NOVORAPID [Concomitant]
  14. LANTUS [Concomitant]
     Indication: DRUG USE FOR UNKNOWN INDICATION
     Dosage: 100 U/ML STYLO
  15. LANTUS [Concomitant]
     Route: 058
  16. GLUCOBAY [Concomitant]
     Indication: DRUG USE FOR UNKNOWN INDICATION
     Dosage: 50 MG X 1/2-TABLET
  17. XATRAL [Concomitant]
     Indication: DRUG USE FOR UNKNOWN INDICATION

REACTIONS (1)
  - CATARACT OPERATION [None]
